FAERS Safety Report 12427527 (Version 1)
Quarter: 2016Q2

REPORT INFORMATION
  Report Type: Spontaneous
  Country: GB (occurrence: GB)
  Receive Date: 20160602
  Receipt Date: 20160602
  Transmission Date: 20160815
  Serious: Yes (Death, Disabling, Other)
  Sender: FDA-Public Use
  Company Number: GB-SUN PHARMACEUTICAL INDUSTRIES LTD-2016RR-117740

PATIENT
  Age: 79 Year
  Sex: Female
  Weight: 62 kg

DRUGS (8)
  1. LEVOTHYROXINE. [Concomitant]
     Active Substance: LEVOTHYROXINE
     Indication: HYPOTHYROIDISM
     Dosage: 50+25MG (SATURDAY AND SUNDAY)
     Route: 048
     Dates: start: 20001102
  2. CALCICHEW D3 [Concomitant]
     Active Substance: CALCIUM\CHOLECALCIFEROL
     Indication: PROPHYLAXIS
     Dosage: FOR BONE PRPHYLAXIS
     Route: 048
     Dates: start: 20050822
  3. ALENDRONIC ACID [Concomitant]
     Active Substance: ALENDRONIC ACID
     Indication: PRODUCT USED FOR UNKNOWN INDICATION
     Dosage: 70 MG, 1/WEEK
     Route: 065
     Dates: start: 20050727
  4. DONEPEZIL. [Suspect]
     Active Substance: DONEPEZIL
     Dosage: 10 MG, UNK
     Route: 048
     Dates: start: 20150917
  5. PREDNISOLONE. [Concomitant]
     Active Substance: PREDNISOLONE
     Indication: LIVER DISORDER
     Dosage: FOR AUTO-IMMUNE LIVER DISORDER
     Route: 048
     Dates: start: 20001102
  6. PARACETAMOL [Concomitant]
     Active Substance: ACETAMINOPHEN
     Indication: PAIN
     Route: 048
     Dates: start: 20080630
  7. DONEPEZIL. [Suspect]
     Active Substance: DONEPEZIL
     Indication: DEMENTIA ALZHEIMER^S TYPE
     Dosage: 5 MG, UNK
     Route: 048
     Dates: start: 20140528
  8. OMEPRAZOLE. [Concomitant]
     Active Substance: OMEPRAZOLE
     Indication: DYSPEPSIA
     Route: 048
     Dates: start: 20071023

REACTIONS (4)
  - Cerebral haematoma [Not Recovered/Not Resolved]
  - Cerebral haemorrhage [Fatal]
  - Hydrocephalus [Not Recovered/Not Resolved]
  - Brain compression [Not Recovered/Not Resolved]

NARRATIVE: CASE EVENT DATE: 20160202
